FAERS Safety Report 6239036-7 (Version None)
Quarter: 2009Q2

REPORT INFORMATION
  Report Type: 
  Country: None (occurrence: None)
  Receive Date: 20090622
  Receipt Date: 20090615
  Transmission Date: 20091009
  Serious: Yes (Other)
  Sender: FDA-Public Use
  Company Number: PHEH2009US06273

PATIENT
  Sex: Female

DRUGS (1)
  1. RECLAST [Suspect]
     Dosage: UNK
     Dates: start: 20090601

REACTIONS (5)
  - ABASIA [None]
  - BLOOD GLUCOSE DECREASED [None]
  - DISORIENTATION [None]
  - FALL [None]
  - PAIN [None]
